FAERS Safety Report 9293894 (Version 1)
Quarter: 2013Q1

REPORT INFORMATION
  Report Type: Spontaneous
  Country: US (occurrence: None)
  Receive Date: 20121217
  Receipt Date: 20121217
  Transmission Date: 20140127
  Serious: Yes (Other)
  Sender: FDA-Public Use
  Company Number: 1000036840

PATIENT
  Age: 68 Year
  Sex: Male

DRUGS (1)
  1. NAMENDA (MEMANTINE HYDROCHLORIDE) [Suspect]

REACTIONS (2)
  - Hypotension [None]
  - Loss of consciousness [None]
